FAERS Safety Report 9268353 (Version 1)
Quarter: 2013Q2

REPORT INFORMATION
  Report Type: Other
  Country: FR (occurrence: FR)
  Receive Date: 20130502
  Receipt Date: 20130502
  Transmission Date: 20140414
  Serious: Yes (Hospitalization)
  Sender: FDA-Public Use
  Company Number: FR-WATSON-2013-08026

PATIENT
  Age: 66 Year
  Sex: Male

DRUGS (1)
  1. CARBOPLATIN (UNKNOWN) [Suspect]
     Indication: COLON CANCER METASTATIC
     Dosage: 250 MG, UNKNOWN
     Route: 042
     Dates: start: 20101026, end: 20101026

REACTIONS (5)
  - Shock [Recovered/Resolved]
  - Chills [Recovered/Resolved]
  - Nausea [Recovered/Resolved]
  - Abdominal pain [Recovered/Resolved]
  - Idiosyncratic drug reaction [Recovered/Resolved]
